FAERS Safety Report 10205645 (Version 3)
Quarter: 2014Q2

REPORT INFORMATION
  Report Type: Spontaneous
  Country: JP (occurrence: JP)
  Receive Date: 20140529
  Receipt Date: 20140612
  Transmission Date: 20141212
  Serious: Yes (Other)
  Sender: FDA-Public Use
  Company Number: JP-009507513-1405JPN012776

PATIENT
  Age: 74 Year
  Sex: Male

DRUGS (4)
  1. THERAPY UNSPECIFIED [Suspect]
     Indication: PLASMA CELL MYELOMA
     Route: 042
  2. LENADEX [Suspect]
     Indication: PLASMA CELL MYELOMA
     Route: 042
  3. REVLIMID [Suspect]
     Indication: PLASMA CELL MYELOMA
     Route: 048
  4. ASPIRIN [Concomitant]
     Indication: PROPHYLAXIS
     Route: 048

REACTIONS (3)
  - Gastrointestinal necrosis [Recovering/Resolving]
  - Portal vein thrombosis [Recovering/Resolving]
  - Mesenteric vein thrombosis [Recovering/Resolving]
